FAERS Safety Report 6649492-8 (Version None)
Quarter: 2010Q1

REPORT INFORMATION
  Report Type: 
  Country: None (occurrence: None)
  Receive Date: 20100324
  Receipt Date: 20100318
  Transmission Date: 20100710
  Serious: Yes (Hospitalization)
  Sender: FDA-Public Use
  Company Number: US-GILEAD-2010-0027954

PATIENT
  Sex: Female
  Weight: 86.26 kg

DRUGS (12)
  1. LETAIRIS [Suspect]
     Indication: PULMONARY ARTERIAL HYPERTENSION
     Route: 048
     Dates: start: 20090904
  2. REVATIO [Concomitant]
  3. ASPIRIN [Concomitant]
  4. DILTIAZEM HCL [Concomitant]
  5. CAPTOPRIL [Concomitant]
  6. CELLCEPT [Concomitant]
  7. SPIRONOLACTONE [Concomitant]
  8. AZATHIOPRINE [Concomitant]
  9. FLONASE [Concomitant]
  10. SINGULAIR [Concomitant]
  11. ALBUTEROL [Concomitant]
  12. VITAMIN D [Concomitant]

REACTIONS (2)
  - DYSPNOEA [None]
  - LUNG INFECTION [None]
